FAERS Safety Report 17662877 (Version 4)
Quarter: 2021Q1

REPORT INFORMATION
  Report Type: Report from Study
  Country: US (occurrence: US)
  Receive Date: 20200413
  Receipt Date: 20210302
  Transmission Date: 20210419
  Serious: Yes (Hospitalization, Other)
  Sender: FDA-Public Use
  Company Number: US-TAKEDA-2020TUS013754

PATIENT
  Sex: Female

DRUGS (3)
  1. PONATINIB [Suspect]
     Active Substance: PONATINIB
     Indication: ACUTE LEUKAEMIA
     Dosage: 30 MILLIGRAM, QD
     Route: 048
     Dates: end: 20200530
  2. PONATINIB [Suspect]
     Active Substance: PONATINIB
     Dosage: 15 MILLIGRAM, QD
     Route: 048
  3. METHOTREXATE. [Concomitant]
     Active Substance: METHOTREXATE
     Dosage: UNK
     Route: 042

REACTIONS (7)
  - Fall [Unknown]
  - Nasal injury [Unknown]
  - Acute leukaemia [Unknown]
  - Myocardial infarction [Unknown]
  - Abdominal pain [Recovered/Resolved]
  - Cognitive disorder [Unknown]
  - Off label use [Unknown]
